FAERS Safety Report 4675777-0 (Version None)
Quarter: 2005Q2

REPORT INFORMATION
  Report Type: 
  Country: None (occurrence: None)
  Receive Date: 20050527
  Receipt Date: 20050422
  Transmission Date: 20051028
  Serious: No
  Sender: FDA-Public Use
  Company Number: US-BRISTOL-MYERS SQUIBB COMPANY-12944187

PATIENT
  Age: 40 Year
  Sex: Male
  Weight: 79 kg

DRUGS (3)
  1. ERBITUX [Suspect]
     Indication: COLORECTAL CANCER
     Route: 042
     Dates: start: 20050401, end: 20050401
  2. AVASTIN [Concomitant]
     Dates: start: 20050401, end: 20050401
  3. CAPECITABINE [Concomitant]
     Dosage: RECEIVED 500 MG THREE IN THE MORNING AND FOUR IN THE EVENING FROM 01-APR-2005 TO 15-APR-2005.
     Route: 048
     Dates: start: 20050401, end: 20050415

REACTIONS (2)
  - DERMATITIS ACNEIFORM [None]
  - PRURITUS [None]
